FAERS Safety Report 16260757 (Version 1)
Quarter: 2019Q2

REPORT INFORMATION
  Report Type: Spontaneous
  Country: GR (occurrence: GR)
  Receive Date: 20190501
  Receipt Date: 20190501
  Transmission Date: 20190711
  Serious: Yes (Hospitalization)
  Sender: FDA-Public Use
  Company Number: PHHY2019GR095734

PATIENT
  Age: 34 Year
  Sex: Male

DRUGS (1)
  1. SECUKINUMAB. [Suspect]
     Active Substance: SECUKINUMAB
     Indication: PSORIASIS
     Dosage: UNK
     Route: 065

REACTIONS (5)
  - Generalised erythema [Recovering/Resolving]
  - Skin exfoliation [Recovering/Resolving]
  - Pseudomonas infection [Unknown]
  - Erythrodermic psoriasis [Recovering/Resolving]
  - Urinary tract infection bacterial [Unknown]
